FAERS Safety Report 7870871-5 (Version None)
Quarter: 2011Q4

REPORT INFORMATION
  Report Type: 
  Country: None (occurrence: None)
  Receive Date: 20111029
  Receipt Date: 20110218
  Transmission Date: 20120403
  Serious: Yes (Hospitalization, Other)
  Sender: FDA-Public Use
  Company Number: US-AMGEN-USASP2010008611

PATIENT
  Age: 47 Year
  Sex: Male

DRUGS (1)
  1. ENBREL [Suspect]
     Indication: PSORIASIS
     Dosage: 50 MG, 2 TIMES/WK
     Dates: start: 20100929, end: 20101101

REACTIONS (7)
  - DRUG INEFFECTIVE [None]
  - ABSCESS [None]
  - LOCAL SWELLING [None]
  - SKIN INDURATION [None]
  - STAPHYLOCOCCAL INFECTION [None]
  - SKIN INFECTION [None]
  - SCRATCH [None]
